FAERS Safety Report 6097469-6 (Version None)
Quarter: 2009Q1

REPORT INFORMATION
  Report Type: 
  Country: None (occurrence: None)
  Receive Date: 20090227
  Receipt Date: 20080716
  Transmission Date: 20090719
  Serious: No
  Sender: FDA-Public Use
  Company Number: A0737964A

PATIENT
  Sex: Female

DRUGS (1)
  1. IMITREX [Suspect]
     Indication: MIGRAINE
     Dosage: 6MG AS REQUIRED
     Route: 042
     Dates: start: 20080715, end: 20080715

REACTIONS (2)
  - INCORRECT ROUTE OF DRUG ADMINISTRATION [None]
  - INJECTION SITE IRRITATION [None]
